FAERS Safety Report 15567284 (Version 1)
Quarter: 2018Q4

REPORT INFORMATION
  Report Type: Report from Study
  Country: US (occurrence: US)
  Receive Date: 20181030
  Receipt Date: 20181030
  Transmission Date: 20190205
  Serious: Yes (Other)
  Sender: FDA-Public Use
  Company Number: US-TESAROUBC-US-2018TSO04308

PATIENT
  Age: 66 Year
  Sex: Female
  Weight: 54.42 kg

DRUGS (2)
  1. ZEJULA [Suspect]
     Active Substance: NIRAPARIB
     Indication: UTERINE CANCER
     Dosage: 200 MG, QD
     Route: 048
     Dates: start: 20180815, end: 20180904
  2. ZEJULA [Suspect]
     Active Substance: NIRAPARIB
     Indication: OVARIAN CANCER RECURRENT
     Dosage: 200 MG, QD
     Route: 048
     Dates: start: 20180905

REACTIONS (13)
  - Blood pressure increased [Recovered/Resolved]
  - Feeling abnormal [Recovered/Resolved]
  - Arthralgia [Not Recovered/Not Resolved]
  - Product dose omission [Unknown]
  - Product use in unapproved indication [Recovered/Resolved]
  - Carbohydrate antigen 125 increased [Recovered/Resolved]
  - Muscular weakness [Not Recovered/Not Resolved]
  - Vision blurred [Recovered/Resolved]
  - Insomnia [Recovering/Resolving]
  - Fatigue [Not Recovered/Not Resolved]
  - General symptom [Unknown]
  - Headache [Recovered/Resolved]
  - Intentional underdose [Not Recovered/Not Resolved]

NARRATIVE: CASE EVENT DATE: 201808
